FAERS Safety Report 7407511-5 (Version None)
Quarter: 2011Q2

REPORT INFORMATION
  Report Type: 
  Country: None (occurrence: None)
  Receive Date: 20110412
  Receipt Date: 20110330
  Transmission Date: 20111010
  Serious: Yes (Death, Hospitalization)
  Sender: FDA-Public Use
  Company Number: FR-BIOGENIDEC-2011BI010314

PATIENT
  Age: 61 Year
  Sex: Male

DRUGS (4)
  1. TYSABRI [Suspect]
     Indication: MULTIPLE SCLEROSIS
     Route: 042
     Dates: start: 20070625, end: 20110228
  2. LAROXYL [Concomitant]
     Indication: DEPRESSION
  3. LAROXYL [Concomitant]
     Indication: PAIN
  4. TEMERIT [Concomitant]
     Indication: HYPERTENSION

REACTIONS (1)
  - CEREBRAL INFARCTION [None]
